FAERS Safety Report 7076554-6 (Version None)
Quarter: 2010Q4

REPORT INFORMATION
  Report Type: 
  Country: None (occurrence: None)
  Receive Date: 20101101
  Receipt Date: 20101022
  Transmission Date: 20110411
  Serious: Yes (Other)
  Sender: FDA-Public Use
  Company Number: US-PFIZER INC-2010136115

PATIENT
  Sex: Male

DRUGS (1)
  1. CHANTIX [Suspect]

REACTIONS (7)
  - BURNING SENSATION [None]
  - DEPRESSION [None]
  - ERYTHEMA [None]
  - LIP BLISTER [None]
  - LIP SWELLING [None]
  - OEDEMA MOUTH [None]
  - SWELLING FACE [None]
